FAERS Safety Report 21463877 (Version 2)
Quarter: 2022Q4

REPORT INFORMATION
  Report Type: Spontaneous
  Country: JP (occurrence: None)
  Receive Date: 20221017
  Receipt Date: 20221205
  Transmission Date: 20230113
  Serious: Yes (Life-Threatening, Other)
  Sender: FDA-Public Use
  Company Number: 2022A272580

PATIENT
  Age: 29735 Day
  Sex: Male
  Weight: 80 kg

DRUGS (18)
  1. DAPAGLIFLOZIN [Suspect]
     Active Substance: DAPAGLIFLOZIN
     Indication: Cardiac failure chronic
     Route: 048
     Dates: start: 20220527, end: 20220531
  2. METFORMIN HYDROCHLORIDE [Concomitant]
     Active Substance: METFORMIN HYDROCHLORIDE
     Dosage: DOSE UNKNOWN
     Route: 065
  3. GLICLAZIDE [Concomitant]
     Active Substance: GLICLAZIDE
     Dosage: DOSE UNKNOWN
     Route: 065
  4. MIGLITOL [Concomitant]
     Active Substance: MIGLITOL
     Dosage: DOSE UNKNOWN
     Route: 065
  5. PIOGLITAZONE [Concomitant]
     Active Substance: PIOGLITAZONE
     Dosage: DOSE UNKNOWN
     Route: 065
  6. TRESIBA [Concomitant]
     Active Substance: INSULIN DEGLUDEC
     Dosage: DOSE UNKNOWN
     Route: 058
  7. TRULICITY [Concomitant]
     Active Substance: DULAGLUTIDE
     Dosage: DOSE UNKNOWN
     Route: 065
  8. LANSOPRAZOLE [Concomitant]
     Active Substance: LANSOPRAZOLE
     Indication: Prophylaxis
     Route: 048
  9. PRASUGREL HYDROCHLORIDE [Concomitant]
     Active Substance: PRASUGREL HYDROCHLORIDE
     Indication: Prophylaxis
     Route: 048
     Dates: start: 20220104
  10. ROSUVASTATIN [Concomitant]
     Active Substance: ROSUVASTATIN
     Route: 048
  11. DONEPEZIL HYDROCHLORIDE [Concomitant]
     Active Substance: DONEPEZIL HYDROCHLORIDE
     Route: 048
     Dates: start: 20210806
  12. TELMISARTAN [Concomitant]
     Active Substance: TELMISARTAN
     Route: 048
  13. AZOSEMIDE [Concomitant]
     Active Substance: AZOSEMIDE
     Route: 048
  14. NICORANDIL [Concomitant]
     Active Substance: NICORANDIL
     Indication: Cardiac failure chronic
     Route: 048
     Dates: start: 20220522
  15. ASPIRIN [Concomitant]
     Active Substance: ASPIRIN
     Indication: Myocardial infarction
     Route: 048
     Dates: start: 20220104
  16. HERBALS [Concomitant]
     Active Substance: HERBALS
     Dosage: 1.0DF UNKNOWN
     Route: 048
  17. HUMULIN R [Concomitant]
     Active Substance: INSULIN HUMAN
     Indication: Type 2 diabetes mellitus
     Dosage: DOSE UNKNOWN
     Route: 058
  18. HUMULIN R [Concomitant]
     Active Substance: INSULIN HUMAN
     Indication: Type 2 diabetes mellitus
     Dosage: DOSE UNKNOWN, DOSE INSTRUCTED BY THE PHYSICIAN
     Route: 062

REACTIONS (4)
  - Acute kidney injury [Recovered/Resolved with Sequelae]
  - Pneumonia aspiration [Recovering/Resolving]
  - Ischaemia [Unknown]
  - Dehydration [Recovering/Resolving]

NARRATIVE: CASE EVENT DATE: 20220531
